FAERS Safety Report 8215022-2 (Version None)
Quarter: 2012Q1

REPORT INFORMATION
  Report Type: 
  Country: None (occurrence: None)
  Receive Date: 20120316
  Receipt Date: 20120312
  Transmission Date: 20120608
  Serious: No
  Sender: FDA-Public Use
  Company Number: US-PFIZER INC-2012065171

PATIENT
  Sex: Male

DRUGS (1)
  1. NICOTROL [Suspect]
     Indication: SMOKING CESSATION THERAPY
     Dosage: ONE PUFF EACH NOSTRIL AS NEEDED
     Route: 045
     Dates: start: 20120311, end: 20120312

REACTIONS (1)
  - BURNING SENSATION [None]
